FAERS Safety Report 4397386-3 (Version None)
Quarter: 2004Q2

REPORT INFORMATION
  Report Type: 
  Country: None (occurrence: None)
  Receive Date: 20040621
  Receipt Date: 20031209
  Transmission Date: 20050107
  Serious: Yes (Death)
  Sender: FDA-Public Use
  Company Number: USA-2003-0011815

PATIENT
  Age: 44 Year
  Sex: Male
  Weight: 70.3 kg

DRUGS (5)
  1. OXYCODONE HCL [Suspect]
     Dosage: MG,
  2. MORPHINE SULFATE [Suspect]
     Dosage: MG,
  3. ETHANOL (ETHANOL) [Suspect]
     Dosage: L,
  4. METOPROLOL (METOPROLOL) [Suspect]
     Dosage: MG,
  5. NICOTINE [Suspect]
     Dosage: MG,

REACTIONS (1)
  - MULTIPLE DRUG OVERDOSE ACCIDENTAL [None]
